FAERS Safety Report 5334576-7 (Version None)
Quarter: 2007Q2

REPORT INFORMATION
  Report Type: 
  Country: None (occurrence: None)
  Receive Date: 20070525
  Receipt Date: 20070515
  Transmission Date: 20071010
  Serious: Yes (Other)
  Sender: FDA-Public Use
  Company Number: US-JNJFOC-20070505710

PATIENT
  Sex: Female
  Weight: 52.16 kg

DRUGS (3)
  1. FENTANYL TRANSDERMAL SYSTEM [Suspect]
     Indication: PAIN
     Route: 062
  2. TRAMADOL HCL [Concomitant]
     Indication: PAIN
     Dosage: AS NEEDED
     Route: 048
  3. CLIMARA [Concomitant]
     Indication: BLOOD OESTROGEN
     Route: 062

REACTIONS (6)
  - ANXIETY [None]
  - BLOOD CHOLESTEROL INCREASED [None]
  - CHEST PAIN [None]
  - DYSPNOEA [None]
  - PAIN [None]
  - PHARMACEUTICAL PRODUCT COMPLAINT [None]
